FAERS Safety Report 19637122 (Version 1)
Quarter: 2021Q3

REPORT INFORMATION
  Report Type: Spontaneous
  Country: US (occurrence: US)
  Receive Date: 20210730
  Receipt Date: 20210730
  Transmission Date: 20211014
  Serious: Yes (Other)
  Sender: FDA-Public Use
  Company Number: US-GLAXOSMITHKLINE-US2021GSK163486

PATIENT
  Sex: Female
  Weight: 72.56 kg

DRUGS (4)
  1. ZANTAC [Suspect]
     Active Substance: RANITIDINE HYDROCHLORIDE
     Indication: ULCER HAEMORRHAGE
     Dosage: UNK
     Route: 065
     Dates: start: 198801, end: 201911
  2. ZANTAC [Suspect]
     Active Substance: RANITIDINE HYDROCHLORIDE
     Indication: ULCER HAEMORRHAGE
     Dosage: UNK
     Route: 065
     Dates: start: 198801, end: 201911
  3. RANITIDINE HYDROCHLORIDE. [Suspect]
     Active Substance: RANITIDINE HYDROCHLORIDE
     Indication: ULCER HAEMORRHAGE
     Dosage: UNK
     Route: 065
     Dates: start: 198801, end: 201911
  4. RANITIDINE HYDROCHLORIDE. [Suspect]
     Active Substance: RANITIDINE HYDROCHLORIDE
     Indication: ULCER HAEMORRHAGE
     Dosage: UNK
     Route: 065
     Dates: start: 198801, end: 201911

REACTIONS (1)
  - Renal cancer [Unknown]
